FAERS Safety Report 15809235 (Version 3)
Quarter: 2019Q2

REPORT INFORMATION
  Report Type: Report from Study
  Country: JP (occurrence: JP)
  Receive Date: 20190110
  Receipt Date: 20190606
  Transmission Date: 20190711
  Serious: Yes (Death, Life-Threatening, Hospitalization, Other)
  Sender: FDA-Public Use
  Company Number: JP-TAKEDA-2017TJP012228

PATIENT
  Age: 85 Year
  Sex: Female
  Weight: 46 kg

DRUGS (6)
  1. IXAZOMIB [Suspect]
     Active Substance: IXAZOMIB
     Indication: PLASMA CELL MYELOMA
     Dosage: 3 MG, 1/WEEK
     Route: 048
     Dates: start: 20170601, end: 20170601
  2. SERENACE [Suspect]
     Active Substance: HALOPERIDOL
     Indication: DELIRIUM
     Dosage: UNK
     Route: 041
     Dates: start: 20170606, end: 20170626
  3. DEXAMETHASONE. [Suspect]
     Active Substance: DEXAMETHASONE
     Indication: PLASMA CELL MYELOMA
     Dosage: 8 MG, UNK
     Route: 048
     Dates: start: 201706, end: 201706
  4. OXIFAST [Suspect]
     Active Substance: OXYCODONE
     Indication: CANCER PAIN
     Dosage: UNK
     Route: 041
     Dates: start: 20170609, end: 20170626
  5. VALACICLOVIR HYDROCHLORIDE [Concomitant]
     Active Substance: VALACYCLOVIR HYDROCHLORIDE
     Indication: PROPHYLAXIS
     Dosage: UNK
     Route: 048
     Dates: end: 20170604
  6. LENALIDOMIDE [Suspect]
     Active Substance: LENALIDOMIDE
     Indication: PLASMA CELL MYELOMA
     Dosage: 5 MG, QD
     Route: 048
     Dates: start: 20170601, end: 20170604

REACTIONS (6)
  - Delirium [Not Recovered/Not Resolved]
  - Hyponatraemia [Recovering/Resolving]
  - Sepsis [Fatal]
  - Plasma cell myeloma [Fatal]
  - Condition aggravated [Not Recovered/Not Resolved]
  - Altered state of consciousness [Not Recovered/Not Resolved]

NARRATIVE: CASE EVENT DATE: 20170601
